FAERS Safety Report 9535439 (Version 2)
Quarter: 2013Q4

REPORT INFORMATION
  Report Type: Report from Study
  Country: ES (occurrence: ES)
  Receive Date: 20130918
  Receipt Date: 20131012
  Transmission Date: 20140711
  Serious: Yes (Hospitalization)
  Sender: FDA-Public Use
  Company Number: ES-AMGEN-ESPCT2013065112

PATIENT
  Age: 76 Year
  Sex: Male

DRUGS (10)
  1. PANITUMUMAB [Suspect]
     Indication: ANAL SQUAMOUS CELL CARCINOMA
     Dosage: 6 MG/KG, Q2WK
     Route: 042
     Dates: start: 20130805
  2. 5 FU [Concomitant]
     Indication: ANAL SQUAMOUS CELL CARCINOMA
     Dosage: 9000 MG/M2, QMO
     Route: 042
     Dates: start: 20130805
  3. MITOMICINA C [Concomitant]
     Indication: ANAL SQUAMOUS CELL CARCINOMA
     Dosage: 10 MG/M2, QMO
     Route: 042
     Dates: start: 20130805
  4. PARAPRES [Concomitant]
     Dosage: 35 MG, QD
     Route: 048
  5. AMERIDE [Concomitant]
     Dosage: UNK UNK, QD
     Route: 048
  6. BISOPROLOL [Concomitant]
     Dosage: 10 MG, QD
     Route: 048
  7. PALEXIA [Concomitant]
     Dosage: 25 MG, Q12H
     Route: 048
     Dates: start: 20130902
  8. ENANTYUM [Concomitant]
     Dosage: 25 MG, Q8H
     Route: 048
     Dates: start: 20130902
  9. SYNALAR [Concomitant]
     Dosage: UNK
     Route: 054
     Dates: start: 20130902
  10. METRONIDAZOL [Concomitant]
     Dosage: UNK
     Route: 061
     Dates: start: 20130902

REACTIONS (1)
  - Dermatitis [Recovering/Resolving]
